FAERS Safety Report 8496029-7 (Version None)
Quarter: 2012Q3

REPORT INFORMATION
  Report Type: 
  Country: None (occurrence: None)
  Receive Date: 20120709
  Receipt Date: 20120705
  Transmission Date: 20120928
  Serious: Yes (Other)
  Sender: FDA-Public Use
  Company Number: FR-ROCHE-801556

PATIENT
  Sex: Female

DRUGS (5)
  1. AVASTIN [Suspect]
     Route: 042
  2. PACLITAXEL [Concomitant]
     Dosage: CHEMOTHERAPY WITH TAXOL WEEKLY WAS STARTED
  3. TAXOTERE [Suspect]
     Indication: BREAST CANCER
     Route: 042
  4. AVASTIN [Suspect]
     Indication: BREAST CANCER
     Route: 042
  5. PACLITAXEL [Concomitant]
     Dosage: SECOND CYCLE

REACTIONS (2)
  - MUCOSAL ULCERATION [None]
  - PERIODONTAL DISEASE [None]
